FAERS Safety Report 8518889-3 (Version None)
Quarter: 2012Q3

REPORT INFORMATION
  Report Type: 
  Country: None (occurrence: None)
  Receive Date: 20120718
  Receipt Date: 20120713
  Transmission Date: 20120928
  Serious: Yes (Death, Other)
  Sender: FDA-Public Use
  Company Number: PHEH2012US011438

PATIENT
  Sex: Female
  Weight: 118 kg

DRUGS (11)
  1. CLONAZEPAM [Concomitant]
     Dosage: UNK UKN, QHS (1-2 QHS)
     Route: 048
  2. PHENTERMINE [Concomitant]
     Dosage: 37.5 MG, QD (MORNING)
     Route: 048
  3. XANAX [Concomitant]
     Dosage: UNK UKN, PRN
     Route: 048
  4. GABAPENTIN [Concomitant]
     Dosage: 300 MG, QID
     Route: 048
  5. LAMICTAL [Concomitant]
     Dosage: 200 MG, QHS
     Route: 048
  6. TIZANIDINE HYDROCHLORIDE [Concomitant]
     Dosage: 2 MG, BID
     Route: 048
  7. ABILIFY [Concomitant]
     Dosage: 5 MG, QD
     Route: 048
  8. AMITRIPTYLINE HYDROCHLORIDE [Concomitant]
     Dosage: 25 MG, QHS
     Route: 048
  9. RISPERDAL [Concomitant]
     Dosage: 3 MG, QD
     Route: 048
  10. TRAZODONE HYDROCHLORIDE [Concomitant]
     Dosage: 100 MG, QHS
     Route: 048
  11. GILENYA [Suspect]
     Indication: MULTIPLE SCLEROSIS
     Dosage: 0.5 MG, QD
     Route: 048
     Dates: start: 20110609

REACTIONS (6)
  - MULTIPLE SCLEROSIS [None]
  - FATIGUE [None]
  - DYSPNOEA [None]
  - SYNCOPE [None]
  - ASTHENIA [None]
  - CIRCULATORY COLLAPSE [None]
